FAERS Safety Report 8450415-X (Version None)
Quarter: 2012Q2

REPORT INFORMATION
  Report Type: 
  Country: None (occurrence: None)
  Receive Date: 20120614
  Receipt Date: 20120614
  Transmission Date: 20120825
  Serious: Yes (Hospitalization)
  Sender: FDA-Public Use
  Company Number: None

PATIENT
  Age: 61 Year
  Sex: Male

DRUGS (1)
  1. LISINOPRIL [Suspect]
     Indication: HYPERTENSION
     Dates: start: 20120301, end: 20120413

REACTIONS (5)
  - SYNCOPE [None]
  - ANGIOEDEMA [None]
  - ABDOMINAL PAIN [None]
  - DRUG HYPERSENSITIVITY [None]
  - APHASIA [None]
